FAERS Safety Report 22979553 (Version 2)
Quarter: 2023Q4

REPORT INFORMATION
  Report Type: Spontaneous
  Country: GB (occurrence: GB)
  Receive Date: 20230925
  Receipt Date: 20231113
  Transmission Date: 20240109
  Serious: Yes (Other)
  Sender: FDA-Public Use
  Company Number: GB-ACRAF SpA-2023-031953

PATIENT

DRUGS (1)
  1. XCOPRI [Suspect]
     Active Substance: CENOBAMATE
     Indication: Epilepsy
     Dosage: UNK
     Route: 048

REACTIONS (6)
  - Seizure [Unknown]
  - Fall [Unknown]
  - Cognitive disorder [Unknown]
  - Condition aggravated [Unknown]
  - Balance disorder [Unknown]
  - Memory impairment [Unknown]
